FAERS Safety Report 21382446 (Version 1)
Quarter: 2022Q3

REPORT INFORMATION
  Report Type: Report from Study
  Country: US (occurrence: US)
  Receive Date: 20220927
  Receipt Date: 20220927
  Transmission Date: 20221026
  Serious: No
  Sender: FDA-Public Use
  Company Number: US-ABBVIE-4130248

PATIENT
  Sex: Male

DRUGS (1)
  1. RINVOQ [Suspect]
     Active Substance: UPADACITINIB
     Indication: Skin disorder
     Route: 048
     Dates: start: 20220903

REACTIONS (6)
  - Skin ulcer haemorrhage [Unknown]
  - Hypoaesthesia [Unknown]
  - Faecal volume increased [Unknown]
  - Pain [Unknown]
  - Eczema [Unknown]
  - Ulcer [Not Recovered/Not Resolved]

NARRATIVE: CASE EVENT DATE: 20220101
